FAERS Safety Report 6535279-3 (Version None)
Quarter: 2010Q1

REPORT INFORMATION
  Report Type: 
  Country: None (occurrence: None)
  Receive Date: 20100105
  Receipt Date: 20091221
  Transmission Date: 20100710
  Serious: Yes (Hospitalization, Other)
  Sender: FDA-Public Use
  Company Number: 235087J09USA

PATIENT
  Age: 35 Year
  Sex: Female
  Weight: 73 kg

DRUGS (4)
  1. REBIF [Suspect]
     Indication: MULTIPLE SCLEROSIS
     Dosage: 44 MCG, 3 IN 1 WEEKS, SUBCUTANEOUS
     Route: 058
     Dates: start: 20090806
  2. ELAVIL [Concomitant]
  3. OXYCONTIN [Concomitant]
  4. MORPHINE [Concomitant]

REACTIONS (11)
  - AGITATION [None]
  - CARDIAC DISORDER [None]
  - CELLULITIS STAPHYLOCOCCAL [None]
  - FALL [None]
  - HEPATITIS [None]
  - HYPERTENSION [None]
  - INFECTION [None]
  - LOSS OF CONSCIOUSNESS [None]
  - MULTIPLE SCLEROSIS RELAPSE [None]
  - RENAL FAILURE [None]
  - SHOCK [None]
